FAERS Safety Report 7201243-4 (Version None)
Quarter: 2010Q4

REPORT INFORMATION
  Report Type: 
  Country: None (occurrence: None)
  Receive Date: 20101229
  Receipt Date: 20101221
  Transmission Date: 20110411
  Serious: Yes (Life-Threatening)
  Sender: FDA-Public Use
  Company Number: PHHY2010CH87713

PATIENT
  Sex: Male

DRUGS (4)
  1. FLUCONAZOLE [Suspect]
     Dosage: 200MG,
     Route: 048
     Dates: start: 20100927, end: 20100927
  2. METRONIDAZOLE [Suspect]
     Dosage: 1500MG (3X 500MG)
     Route: 048
     Dates: start: 20100916
  3. EFFEXOR [Suspect]
     Dosage: 75MG,
     Route: 048
  4. PANTOZOL [Concomitant]
     Dosage: 40MG, 1 PER ONE DAY
     Route: 048

REACTIONS (3)
  - ELECTROCARDIOGRAM QT PROLONGED [None]
  - TORSADE DE POINTES [None]
  - VENTRICULAR FLUTTER [None]
